FAERS Safety Report 8157506-1 (Version None)
Quarter: 2012Q1

REPORT INFORMATION
  Report Type: 
  Country: None (occurrence: None)
  Receive Date: 20120222
  Receipt Date: 20120217
  Transmission Date: 20120608
  Serious: Yes (Hospitalization, Other)
  Sender: FDA-Public Use
  Company Number: BR-PFIZER INC-2012043547

PATIENT
  Age: 86 Year
  Sex: Female

DRUGS (5)
  1. GINKGO BILOBA [Concomitant]
     Dosage: UNK
  2. XALATAN [Suspect]
     Indication: GLAUCOMA
     Dosage: 1.5 UG (ONE DROP), 1X/DAY
     Route: 047
     Dates: start: 20080217
  3. COSOPT [Concomitant]
     Indication: GLAUCOMA
     Dosage: UNK
  4. PROPYLENE GLYCOL [Concomitant]
     Dosage: UNK
  5. DAFLON [Concomitant]
     Dosage: UNK

REACTIONS (2)
  - GLAUCOMA [None]
  - CATARACT [None]
